FAERS Safety Report 24563354 (Version 1)
Quarter: 2024Q4

REPORT INFORMATION
  Report Type: Report from Study
  Country: GR (occurrence: GR)
  Receive Date: 20241030
  Receipt Date: 20241030
  Transmission Date: 20250114
  Serious: Yes (Congenital Anomaly)
  Sender: EMD SERONO INC
  Company Number: GR-Merck Healthcare KGaA-2024056979

PATIENT
  Sex: Female
  Weight: 3 kg

DRUGS (1)
  1. REBIF [Suspect]
     Active Substance: INTERFERON BETA-1A
     Indication: Multiple sclerosis
     Route: 064

REACTIONS (2)
  - Single umbilical artery [Recovering/Resolving]
  - Foetal exposure during pregnancy [Recovered/Resolved]
